FAERS Safety Report 8852183 (Version 3)
Quarter: 2012Q4

REPORT INFORMATION
  Report Type: Report from Study
  Country: US (occurrence: US)
  Receive Date: 20121022
  Receipt Date: 20121220
  Transmission Date: 20130627
  Serious: Yes (Hospitalization)
  Sender: FDA-Public Use
  Company Number: US-UCBSA-069018

PATIENT
  Age: 36 Year
  Sex: Female
  Weight: 83.9 kg

DRUGS (12)
  1. CERTOLIZUMAB PEGOL [Suspect]
     Indication: RHEUMATOID ARTHRITIS
     Dosage: NO OF DOSES RECEIVED: 9
     Route: 058
     Dates: start: 20120802, end: 20121014
  2. FERROUS SULFATE [Concomitant]
     Indication: IRON DEFICIENCY ANAEMIA
     Route: 048
     Dates: start: 201206
  3. PREDNISONE [Concomitant]
     Indication: ARTHRALGIA
     Route: 048
     Dates: start: 20121009, end: 20121015
  4. PREDNISONE [Concomitant]
     Indication: ARTHRALGIA
     Route: 048
     Dates: start: 20120928, end: 20121008
  5. PREDNISONE [Concomitant]
     Indication: ARTHRALGIA
     Route: 048
     Dates: start: 20120711, end: 20120927
  6. NORCO [Concomitant]
     Indication: ARTHRALGIA
     Dosage: 7.5/325 MG PRN
     Route: 048
     Dates: start: 20120711, end: 20120913
  7. FOLIC ACID [Concomitant]
     Indication: RHEUMATOID ARTHRITIS
     Route: 048
     Dates: start: 20120802
  8. METHOTREXATE [Concomitant]
     Indication: RHEUMATOID ARTHRITIS
     Route: 048
     Dates: start: 20120913, end: 20121015
  9. METHOTREXATE [Concomitant]
     Indication: RHEUMATOID ARTHRITIS
     Route: 048
     Dates: start: 20120830, end: 20120912
  10. METHOTREXATE [Concomitant]
     Indication: RHEUMATOID ARTHRITIS
     Route: 048
     Dates: start: 20120816, end: 20120829
  11. METHOTREXATE [Concomitant]
     Indication: RHEUMATOID ARTHRITIS
     Route: 048
     Dates: start: 20120802, end: 20120815
  12. HYDROCORTISONE CREAM [Concomitant]
     Indication: PRURITUS
     Route: 061
     Dates: start: 20120802

REACTIONS (3)
  - Staphylococcal infection [Recovered/Resolved]
  - Groin abscess [Recovered/Resolved]
  - Abscess limb [Recovered/Resolved]
